FAERS Safety Report 10514809 (Version 2)
Quarter: 2014Q4

REPORT INFORMATION
  Report Type: Spontaneous
  Country: US (occurrence: US)
  Receive Date: 20141013
  Receipt Date: 20141204
  Transmission Date: 20150528
  Serious: Yes (Other)
  Sender: FDA-Public Use
  Company Number: ALCN2014US005619

PATIENT
  Age: 72 Year
  Sex: Female

DRUGS (1)
  1. BSS [Suspect]
     Active Substance: CALCIUM CHLORIDE\MAGNESIUM CHLORIDE\POTASSIUM CHLORIDE\SODIUM ACETATE\SODIUM CHLORIDE\SODIUM CITRATE
     Indication: EYE OPERATION
     Dosage: 1 DF, UNK
     Route: 065
     Dates: start: 20141006, end: 20141006

REACTIONS (2)
  - Vision blurred [Unknown]
  - Lens disorder [Unknown]

NARRATIVE: CASE EVENT DATE: 20141006
